FAERS Safety Report 22013718 (Version 1)
Quarter: 2023Q1

REPORT INFORMATION
  Report Type: Spontaneous
  Country: CN (occurrence: CN)
  Receive Date: 20230221
  Receipt Date: 20230221
  Transmission Date: 20230418
  Serious: Yes (Hospitalization, Other)
  Sender: FDA-Public Use
  Company Number: None

PATIENT
  Age: 7 Year
  Sex: Female
  Weight: 20.5 kg

DRUGS (5)
  1. CYCLOPHOSPHAMIDE [Suspect]
     Active Substance: CYCLOPHOSPHAMIDE
     Indication: Acute lymphocytic leukaemia
     Dosage: 0.83 G, QD, DILUTED WITH (4:1) GLUCOSE AND SODIUM CHLORIDE (250 ML), AS A PART OF CAM REGIMEN
     Route: 041
     Dates: start: 20221212, end: 20221212
  2. DEXTROSE\SODIUM CHLORIDE [Suspect]
     Active Substance: DEXTROSE\SODIUM CHLORIDE
     Indication: Medication dilution
     Dosage: 250 ML, QD, USED TO DILUTE CYCLOPHOSPHAMIDE (0.83 G), AS A PART OF CAM REGIMEN, DOSAGE FORM: INJECTI
     Route: 041
     Dates: start: 20221212, end: 20221212
  3. DEXTROSE\SODIUM CHLORIDE [Suspect]
     Active Substance: DEXTROSE\SODIUM CHLORIDE
     Dosage: 100 ML, BID, USED TO DILUTE CYTARABINE (0.83 G), AS A PART OF CAM REGIMEN, DOSAGE FORM: INJECTION, R
     Route: 041
     Dates: start: 20221212, end: 20221215
  4. MERCAPTOPURINE [Suspect]
     Active Substance: MERCAPTOPURINE
     Indication: Acute lymphocytic leukaemia
     Dosage: 41.5 MG, ONCE A NIGHT, AS A PART OF CAM REGIMEN
     Route: 048
     Dates: start: 20221212, end: 20221215
  5. CYTARABINE [Suspect]
     Active Substance: CYTARABINE
     Indication: Acute lymphocytic leukaemia
     Dosage: 0.83 G, BID, DILUTED WITH (4:1) GLUCOSE AND SODIUM CHLORIDE (100 ML), AS A PART OF CAM REGIMEN
     Route: 041
     Dates: start: 20221212, end: 20221215

REACTIONS (1)
  - Myelosuppression [Recovering/Resolving]

NARRATIVE: CASE EVENT DATE: 20221221
